FAERS Safety Report 5188856-9 (Version None)
Quarter: 2006Q4

REPORT INFORMATION
  Report Type: 
  Country: None (occurrence: None)
  Receive Date: 20061221
  Receipt Date: 20061213
  Transmission Date: 20070319
  Serious: Yes (Other)
  Sender: FDA-Public Use
  Company Number: US-ROXANE LABORATORIES, INC-2006-BP-14648RO

PATIENT
  Age: 40 Year
  Sex: Female

DRUGS (7)
  1. METOCLOPRAMIDE [Suspect]
     Indication: POST PROCEDURAL NAUSEA
     Dosage: 10 MG X 1 DOSE
     Route: 042
  2. SERTRALINE [Suspect]
     Dosage: 50 MG DAILY
  3. MOXIFLOXACIN HCL [Suspect]
     Indication: PNEUMONIA
  4. SULFA-METHOXAZOLE /TRIMETHOPRIN DS [Concomitant]
     Indication: PROPHYLAXIS
  5. ACYCLOVIR [Concomitant]
     Indication: PROPHYLAXIS
  6. ALLOPURINOL [Concomitant]
  7. FAMOTIDINE [Concomitant]

REACTIONS (4)
  - CHOREA [None]
  - DRUG INTERACTION [None]
  - FEMUR FRACTURE [None]
  - PNEUMONIA [None]
